FAERS Safety Report 6497978-1 (Version None)
Quarter: 2009Q4

REPORT INFORMATION
  Report Type: 
  Country: None (occurrence: None)
  Receive Date: 20091215
  Receipt Date: 20091201
  Transmission Date: 20100525
  Serious: Yes (Other)
  Sender: FDA-Public Use
  Company Number: PHHY2009US53044

PATIENT
  Sex: Female

DRUGS (33)
  1. TEGRETOL [Suspect]
     Dosage: 200 MG, BID
     Route: 048
     Dates: start: 20090616
  2. KEPPRA [Suspect]
     Dosage: 500 MG, BID
     Route: 042
     Dates: start: 20090501
  3. REVLIMID [Suspect]
     Indication: MULTIPLE MYELOMA
     Dosage: 5 MG, QD
     Route: 048
     Dates: start: 20070823, end: 20090601
  4. REVLIMID [Suspect]
     Dosage: 5 MG, QD
     Route: 048
     Dates: start: 20090611
  5. COUMADIN [Concomitant]
     Dosage: 5 MG DAILY (EXCEPT SUNDAY)
     Route: 048
  6. COUMADIN [Concomitant]
     Dosage: 7.5 MG, QHS
     Route: 048
  7. FENTANYL [Concomitant]
     Dosage: 25 UG EVERY 72 HOURS
     Route: 062
     Dates: end: 20090101
  8. CYMBALTA [Concomitant]
     Dosage: 30 MG DAILY
     Dates: end: 20090101
  9. VALTREX [Concomitant]
     Dosage: 1 G, TID
     Dates: end: 20090101
  10. AMLODIPINE [Concomitant]
     Dosage: 5 MG DAILY
     Route: 048
  11. DEXAMETHASONE TAB [Concomitant]
     Dosage: 4 MG EVERY FRIDAY
     Dates: end: 20090101
  12. OLOPATADINE HYDROCHLORIDE [Concomitant]
     Dosage: UNK
     Route: 047
  13. ASPIRIN [Concomitant]
     Dosage: 325 MG, UNK
     Dates: start: 20090501
  14. HUMALOG [Concomitant]
     Indication: DIABETES MELLITUS
     Dosage: UNK
     Dates: start: 20090501
  15. ELECTROLYTE SOLUTIONS [Concomitant]
     Dosage: UNK
     Dates: start: 20090501
  16. ACYCLOVIR [Concomitant]
     Dosage: UNK
     Route: 042
     Dates: start: 20090501
  17. DALTEPARIN [Concomitant]
     Dosage: 5000 UNITS DAILY
     Route: 058
  18. SINGULAIR [Concomitant]
     Dosage: 10 MG DAILY
     Route: 048
  19. NORVASC [Concomitant]
  20. SYNTHROID [Concomitant]
  21. ZYRTEC [Concomitant]
     Dosage: 10 MG DAILY
     Route: 048
  22. CLARITIN [Concomitant]
  23. GABAPENTIN [Concomitant]
     Indication: NEUROPATHY PERIPHERAL
  24. CALCIUM [Concomitant]
  25. OMEPRAZOLE [Concomitant]
  26. POTASSIUM CHLORIDE [Concomitant]
  27. MAALOX [Concomitant]
  28. LOMOTIL [Concomitant]
     Indication: DIARRHOEA
  29. LYRICA [Concomitant]
     Indication: NEUROPATHY PERIPHERAL
  30. MILK OF MAGNESIA TAB [Concomitant]
  31. TYLENOL (CAPLET) [Concomitant]
  32. DOCUSATE [Concomitant]
  33. NEXIUM [Concomitant]
     Dosage: 40 MG, BID
     Route: 048

REACTIONS (15)
  - APRAXIA [None]
  - ATAXIA [None]
  - DIPLOPIA [None]
  - DIZZINESS [None]
  - DRUG TOXICITY [None]
  - DYSURIA [None]
  - ENCEPHALOPATHY [None]
  - FALL [None]
  - GAIT DISTURBANCE [None]
  - METABOLIC ENCEPHALOPATHY [None]
  - MUSCLE SPASTICITY [None]
  - NYSTAGMUS [None]
  - URINARY INCONTINENCE [None]
  - URINE ODOUR ABNORMAL [None]
  - VERTIGO [None]
